FAERS Safety Report 5503132-X (Version None)
Quarter: 2007Q4

REPORT INFORMATION
  Report Type: 
  Country: None (occurrence: None)
  Receive Date: 20071029
  Receipt Date: 20071029
  Transmission Date: 20080405
  Serious: Yes (Hospitalization)
  Sender: FDA-Public Use
  Company Number: None

PATIENT
  Sex: Female
  Weight: 104 kg

DRUGS (4)
  1. LEUCOVORIN CALCIUM [Suspect]
     Dosage: 350 MG
     Dates: end: 20071019
  2. MERCAPTOPURINE [Suspect]
     Dosage: 775 MG
     Dates: end: 20071014
  3. METHOTREXATE [Suspect]
     Dosage: 4435 MG
     Dates: end: 20071013
  4. VINCRISTINE SULFATE [Suspect]
     Dosage: 4 MG
     Dates: end: 20071012

REACTIONS (4)
  - FLUID OVERLOAD [None]
  - LOBAR PNEUMONIA [None]
  - PANCYTOPENIA [None]
  - PERICARDIAL EFFUSION [None]
